FAERS Safety Report 14427600 (Version 1)
Quarter: 2018Q1

REPORT INFORMATION
  Report Type: Spontaneous
  Country: US (occurrence: US)
  Receive Date: 20180123
  Receipt Date: 20180123
  Transmission Date: 20180509
  Serious: Yes (Other)
  Sender: FDA-Public Use
  Company Number: US-ALLERGAN-1801862US

PATIENT
  Age: 63 Year
  Sex: Male

DRUGS (5)
  1. IRON [Suspect]
     Active Substance: IRON
     Indication: ABDOMINAL PAIN
     Route: 065
  2. BENTYL [Suspect]
     Active Substance: DICYCLOMINE HYDROCHLORIDE
     Indication: ABDOMINAL PAIN
     Dosage: UNK UNK, UNKNOWN
     Route: 065
  3. IBUPROFEN. [Suspect]
     Active Substance: IBUPROFEN
     Indication: ABDOMINAL PAIN
     Route: 065
  4. XTANDI [Suspect]
     Active Substance: ENZALUTAMIDE
     Indication: PROSTATE CANCER METASTATIC
     Dosage: 4 DF, QD
     Route: 065
     Dates: start: 20170527
  5. PRILOSEC [Suspect]
     Active Substance: OMEPRAZOLE MAGNESIUM
     Indication: ABDOMINAL PAIN
     Dosage: UNK UNK, UNKNOWN
     Route: 065

REACTIONS (8)
  - Large intestinal obstruction [Unknown]
  - Prostate cancer [Unknown]
  - Anaemia [Unknown]
  - Restless legs syndrome [Unknown]
  - Hot flush [Unknown]
  - Insomnia [Unknown]
  - Internal haemorrhage [Unknown]
  - Duodenal ulcer [Unknown]
